FAERS Safety Report 21928589 (Version 1)
Quarter: 2023Q1

REPORT INFORMATION
  Report Type: Spontaneous
  Country: US (occurrence: US)
  Receive Date: 20230130
  Receipt Date: 20230130
  Transmission Date: 20230417
  Serious: No
  Sender: FDA-Public Use
  Company Number: US-drreddys-SPO/USA/22/0158868

PATIENT
  Age: 60 Year
  Sex: Male

DRUGS (3)
  1. LENALIDOMIDE [Suspect]
     Active Substance: LENALIDOMIDE
     Indication: Plasma cell myeloma
     Dosage: TAKE 1 CAPSULE BY MOUTH WITH WATER, WITH OR WITHOUT FOOD AT SAME TIME EVERY DAY FOR 21 DAYS, FOLLOWE
     Route: 048
  2. LENALIDOMIDE [Suspect]
     Active Substance: LENALIDOMIDE
     Dosage: TAKE 1 CAPSULE BY MOUTH WITH WATER, WITH OR WITHOUT FOOD AT SAME TIME EVERY DAY FOR 21 DAYS, FOLLOWE
     Route: 048
  3. XARELTO [Concomitant]
     Active Substance: RIVAROXABAN
     Indication: Product used for unknown indication

REACTIONS (3)
  - Muscle spasms [Unknown]
  - Hypoaesthesia [Unknown]
  - Lethargy [Unknown]
